FAERS Safety Report 12719717 (Version 1)
Quarter: 2016Q3

REPORT INFORMATION
  Report Type: Spontaneous
  Country: US (occurrence: US)
  Receive Date: 20160907
  Receipt Date: 20160907
  Transmission Date: 20161109
  Serious: No
  Sender: FDA-Public Use
  Company Number: US-BAYER-2016-173723

PATIENT
  Age: 51 Year
  Sex: Female
  Weight: 77.9 kg

DRUGS (2)
  1. DULCOLAX (DOCUSATE SODIUM) [Concomitant]
     Active Substance: DOCUSATE SODIUM
     Dosage: 2 OR 4 DF
  2. MIRALAX [Suspect]
     Active Substance: POLYETHYLENE GLYCOL 3350
     Indication: COLONOSCOPY
     Dosage: 1/2 OF A 8.3OZ BOTTLE OF MIRALAX MIXED WITH 32OZ OF GATORADE AND HOURS LATER DRINK OTHER HALF, ONCE
     Route: 048
     Dates: start: 2013

REACTIONS (2)
  - Off label use [None]
  - Diarrhoea [None]

NARRATIVE: CASE EVENT DATE: 2013
